FAERS Safety Report 9998984 (Version 1)
Quarter: 2014Q1

REPORT INFORMATION
  Report Type: Spontaneous
  Country: US (occurrence: None)
  Receive Date: 20140311
  Receipt Date: 20140311
  Transmission Date: 20141002
  Serious: Yes (Disabling)
  Sender: FDA-Public Use
  Company Number: None

PATIENT
  Age: 34 Year
  Sex: Female
  Weight: 111.13 kg

DRUGS (1)
  1. POLYETHYLENE GLYCOL 3350 [Suspect]
     Indication: CONSTIPATION
     Route: 048
     Dates: start: 20140207, end: 20140226

REACTIONS (7)
  - Anxiety [None]
  - Panic attack [None]
  - Palpitations [None]
  - Dyspnoea [None]
  - Feeling abnormal [None]
  - Blood pressure increased [None]
  - Fear [None]
